FAERS Safety Report 9515122 (Version 2)
Quarter: 2013Q4

REPORT INFORMATION
  Report Type: Spontaneous
  Country: CA (occurrence: None)
  Receive Date: 20130909
  Receipt Date: 20131025
  Transmission Date: 20140711
  Serious: Yes (Death)
  Sender: FDA-Public Use
  Company Number: CA-012881

PATIENT
  Age: 76 Year
  Sex: Male

DRUGS (2)
  1. DEGARELIX (FIRMAGON) [Suspect]
     Indication: PROSTATE CANCER
     Dosage: (80 MG  (4 MONTHS 1X MONTH SUBCUTANEOUS)
     Route: 058
  2. COUMADIN / 00014802 / [Concomitant]

REACTIONS (5)
  - Prostate cancer [None]
  - Metastases to liver [None]
  - Abdominal pain [None]
  - Back pain [None]
  - Fall [None]
